FAERS Safety Report 10569209 (Version 3)
Quarter: 2014Q4

REPORT INFORMATION
  Report Type: Spontaneous
  Country: US (occurrence: JP)
  Receive Date: 20141106
  Receipt Date: 20141117
  Transmission Date: 20150529
  Serious: Yes (Death)
  Sender: FDA-Public Use
  Company Number: JP-CELGENE-087-21880-13042949

PATIENT
  Age: 78 Year
  Sex: Male

DRUGS (18)
  1. PC [Concomitant]
     Indication: PRODUCT USED FOR UNKNOWN INDICATION
     Dosage: 10 UNITS
     Route: 041
     Dates: start: 20120905, end: 20120926
  2. RCC [Concomitant]
     Dosage: 2 UNITS
     Route: 041
     Dates: start: 20120905, end: 20120926
  3. TAKEPRON [Concomitant]
     Active Substance: LANSOPRAZOLE
     Indication: PROPHYLAXIS
     Dosage: 4 GRAM
     Route: 048
     Dates: start: 20120412
  4. ZYLORIC [Concomitant]
     Active Substance: ALLOPURINOL
     Indication: HYPERURICAEMIA
     Route: 048
     Dates: start: 20120412
  5. RCC [Concomitant]
     Dosage: 2 UNITS
     Route: 041
     Dates: start: 20121030, end: 20130205
  6. DECADRON [Concomitant]
     Active Substance: DEXAMETHASONE
     Indication: PLASMA CELL MYELOMA
     Route: 048
     Dates: start: 20120412, end: 20130205
  7. RCC [Concomitant]
     Indication: PRODUCT USED FOR UNKNOWN INDICATION
     Dosage: 2 UNITS
     Route: 041
     Dates: start: 20120403, end: 20120808
  8. BAKTAR [Concomitant]
     Active Substance: SULFAMETHOXAZOLE\TRIMETHOPRIM
     Indication: PROPHYLAXIS
     Dosage: 100 MILLIGRAM
     Route: 048
     Dates: start: 20120412
  9. DECADRON [Concomitant]
     Active Substance: DEXAMETHASONE
     Route: 065
     Dates: start: 20110203, end: 20110823
  10. SENNA [Concomitant]
     Active Substance: SENNA LEAF\SENNOSIDES\SENNOSIDES A AND B
     Indication: CONSTIPATION
     Route: 048
     Dates: start: 20120412
  11. LASIX [Concomitant]
     Active Substance: FUROSEMIDE
     Indication: OEDEMA
     Route: 048
     Dates: start: 20120412
  12. MELPHALAN [Suspect]
     Active Substance: MELPHALAN
     Indication: PLASMA CELL MYELOMA
     Dosage: 250 MILLIGRAM
     Route: 065
     Dates: start: 20080628, end: 20110130
  13. PC [Concomitant]
     Dosage: 10 UNITS
     Route: 041
     Dates: start: 20121003, end: 20121010
  14. PC [Concomitant]
     Dosage: 10 UNITS
     Route: 041
     Dates: start: 20121030, end: 20130205
  15. FAMVIR [Concomitant]
     Active Substance: FAMCICLOVIR
     Indication: PROPHYLAXIS
     Route: 048
     Dates: start: 20120412
  16. REVLIMID [Suspect]
     Active Substance: LENALIDOMIDE
     Indication: PLASMA CELL MYELOMA
     Dosage: 10 MILLIGRAM
     Route: 048
     Dates: start: 20120412, end: 20130121
  17. DECADRON [Concomitant]
     Active Substance: DEXAMETHASONE
     Route: 065
     Dates: start: 20110929, end: 20120410
  18. ITRIZOLE [Concomitant]
     Active Substance: ITRACONAZOLE
     Indication: PROPHYLAXIS
     Dosage: 120 MILLIGRAM
     Route: 048
     Dates: start: 20120412

REACTIONS (2)
  - Eosinophil count increased [Recovered/Resolved]
  - Lung adenocarcinoma stage IV [Fatal]

NARRATIVE: CASE EVENT DATE: 201205
